FAERS Safety Report 20499159 (Version 2)
Quarter: 2022Q2

REPORT INFORMATION
  Report Type: Spontaneous
  Country: US (occurrence: US)
  Receive Date: 20220222
  Receipt Date: 20220627
  Transmission Date: 20220721
  Serious: No
  Sender: FDA-Public Use
  Company Number: US-BAUSCH-BL-2022-004619

PATIENT
  Age: 68 Year
  Sex: Female
  Weight: 65.830 kg

DRUGS (3)
  1. ZIRGAN [Suspect]
     Active Substance: GANCICLOVIR
     Indication: Viral corneal ulcer
     Dosage: ONE GRAM IN LEFT EYE EVERY 4 TO 6 HOURS
     Route: 047
     Dates: start: 20220215
  2. ERYTHROMYCIN [Concomitant]
     Active Substance: ERYTHROMYCIN
     Indication: Product used for unknown indication
     Route: 047
  3. VALACYCLOVIR [Concomitant]
     Active Substance: VALACYCLOVIR HYDROCHLORIDE
     Indication: Product used for unknown indication
     Dosage: AS DIRECTED
     Route: 048

REACTIONS (4)
  - Viral corneal ulcer [Unknown]
  - Condition aggravated [Unknown]
  - Prescribed overdose [Unknown]
  - Extra dose administered [Unknown]
